FAERS Safety Report 8226746-5 (Version None)
Quarter: 2012Q1

REPORT INFORMATION
  Report Type: 
  Country: None (occurrence: None)
  Receive Date: 20120322
  Receipt Date: 20120313
  Transmission Date: 20120608
  Serious: Yes (Hospitalization)
  Sender: FDA-Public Use
  Company Number: US-BAYER-2011-116598

PATIENT
  Age: 43 Year
  Sex: Female
  Weight: 86.168 kg

DRUGS (8)
  1. NAPROXEN (ALEVE) [Concomitant]
     Indication: PAIN
     Dosage: UNK UNK, TID, PRN
  2. YASMIN [Suspect]
     Indication: CONTRACEPTION
     Dosage: UNK
     Dates: start: 20050120, end: 20080601
  3. DROSPIRENONE AND ETHINYL ESTRADIOL [Suspect]
     Indication: CONTRACEPTION
     Dosage: UNK
     Dates: start: 20080701, end: 20100115
  4. MULTIPLE VITAMINS [Concomitant]
     Indication: SUPPLEMENTATION THERAPY
     Dosage: UNK UNK, QD
  5. DROSPIRENONE AND ETHINYL ESTRADIOL [Suspect]
     Indication: ACNE
  6. YASMIN [Suspect]
     Indication: ACNE
  7. ANACIN [Concomitant]
     Indication: PAIN
     Dosage: UNK UNK, BID
  8. VITAMIN B COMPLEX CAP [Concomitant]
     Indication: SUPPLEMENTATION THERAPY
     Dosage: UNK UNK, PRN

REACTIONS (5)
  - INJURY [None]
  - PAIN [None]
  - ANXIETY [None]
  - PULMONARY EMBOLISM [None]
  - ANHEDONIA [None]
